FAERS Safety Report 24465289 (Version 1)
Quarter: 2024Q4

REPORT INFORMATION
  Report Type: Report from Study
  Country: US (occurrence: US)
  Receive Date: 20241018
  Receipt Date: 20241018
  Transmission Date: 20250115
  Serious: No
  Sender: ROCHE
  Company Number: US-ROCHE-3518139

PATIENT
  Age: 28 Year
  Sex: Female
  Weight: 145.15 kg

DRUGS (24)
  1. XOLAIR [Suspect]
     Active Substance: OMALIZUMAB
     Indication: Idiopathic urticaria
     Route: 058
     Dates: start: 2023
  2. XOLAIR [Suspect]
     Active Substance: OMALIZUMAB
     Indication: Mast cell activation syndrome
  3. SPIRONOLACTONE [Concomitant]
     Active Substance: SPIRONOLACTONE
  4. AZELASTINE [Concomitant]
     Active Substance: AZELASTINE
  5. BACLOFEN [Concomitant]
     Active Substance: BACLOFEN
  6. BROMOCRIPTINE [Concomitant]
     Active Substance: BROMOCRIPTINE
  7. CETIRIZINE HYDROCHLORIDE [Concomitant]
     Active Substance: CETIRIZINE HYDROCHLORIDE
  8. DICYCLOMINE [Concomitant]
     Active Substance: DICYCLOMINE HYDROCHLORIDE
  9. DULOXETINE HYDROCHLORIDE [Concomitant]
     Active Substance: DULOXETINE HYDROCHLORIDE
  10. EPIPEN [Concomitant]
     Active Substance: EPINEPHRINE
  11. FAMOTIDINE [Concomitant]
     Active Substance: FAMOTIDINE
  12. FEXOFENADINE [Concomitant]
     Active Substance: FEXOFENADINE HYDROCHLORIDE
  13. HYDROXYZINE HYDROCHLORIDE [Concomitant]
     Active Substance: HYDROXYZINE HYDROCHLORIDE
  14. LEVOTHYROXINE [Concomitant]
     Active Substance: LEVOTHYROXINE
  15. LIDOCAINE\PRILOCAINE [Concomitant]
     Active Substance: LIDOCAINE\PRILOCAINE
  16. METFORMIN HYDROCHLORIDE [Concomitant]
     Active Substance: METFORMIN HYDROCHLORIDE
  17. MIRTAZAPINE [Concomitant]
     Active Substance: MIRTAZAPINE
  18. MONTELUKAST [Concomitant]
     Active Substance: MONTELUKAST
  19. MUPIROCIN [Concomitant]
     Active Substance: MUPIROCIN
  20. MUPIROCIN [Concomitant]
     Active Substance: MUPIROCIN
  21. PANTOPRAZOLE SODIUM [Concomitant]
     Active Substance: PANTOPRAZOLE SODIUM
  22. RIZATRIPTAN [Concomitant]
     Active Substance: RIZATRIPTAN
  23. SCOPOLAMINE [Concomitant]
     Active Substance: SCOPOLAMINE
  24. HYDROCORTISONE [Concomitant]
     Active Substance: HYDROCORTISONE

REACTIONS (3)
  - Headache [Not Recovered/Not Resolved]
  - Sneezing [Unknown]
  - Off label use [Unknown]

NARRATIVE: CASE EVENT DATE: 20240101
